FAERS Safety Report 5834442-4 (Version None)
Quarter: 2008Q3

REPORT INFORMATION
  Report Type: 
  Country: None (occurrence: None)
  Receive Date: 20080805
  Receipt Date: 20080715
  Transmission Date: 20090109
  Serious: No
  Sender: FDA-Public Use
  Company Number: US-BOEHRINGER INGELHEIM GMBH, GERMANY-2008-BP-10200BP

PATIENT
  Sex: Female

DRUGS (17)
  1. SPIRIVA [Suspect]
     Indication: CHRONIC OBSTRUCTIVE PULMONARY DISEASE
     Route: 055
     Dates: start: 20050101
  2. SPIRIVA [Suspect]
     Indication: EMPHYSEMA
  3. SPIRIVA [Suspect]
     Indication: PRODUCTIVE COUGH
  4. SEREVENT [Concomitant]
     Indication: CHRONIC OBSTRUCTIVE PULMONARY DISEASE
  5. DIAZEPAM [Concomitant]
  6. LEVOTHYROXINE SODIUM [Concomitant]
  7. DIGOXIN [Concomitant]
  8. FUROSEMIDE [Concomitant]
  9. PANTOPRAZOLE SODIUM [Concomitant]
  10. CARDIZEM [Concomitant]
  11. FEXOFENADINE [Concomitant]
  12. GABAPENTIN [Concomitant]
  13. PRAMIPEXOLE DIHYDROCHLORIDE [Concomitant]
  14. LOVASTATIN [Concomitant]
  15. NABUMETONE [Concomitant]
  16. ALBUTEROL [Concomitant]
  17. EYE DROPS [Concomitant]
     Indication: GLAUCOMA

REACTIONS (1)
  - PRODUCTIVE COUGH [None]
